FAERS Safety Report 6770257-0 (Version None)
Quarter: 2010Q2

REPORT INFORMATION
  Report Type: 
  Country: None (occurrence: None)
  Receive Date: 20100604
  Receipt Date: 20091221
  Transmission Date: 20101027
  Serious: Yes (Hospitalization, Other)
  Sender: FDA-Public Use
  Company Number: 2009SP043059

PATIENT
  Age: 27 Year
  Sex: Female
  Weight: 81.6475 kg

DRUGS (1)
  1. NUVARING [Suspect]
     Indication: CONTRACEPTION
     Dosage: VAG
     Route: 067
     Dates: end: 20070901

REACTIONS (8)
  - ANXIETY [None]
  - COGNITIVE DISORDER [None]
  - DEEP VEIN THROMBOSIS [None]
  - EMOTIONAL DISORDER [None]
  - MENTAL DISORDER [None]
  - OVARIAN CYST [None]
  - PANIC ATTACK [None]
  - PULMONARY EMBOLISM [None]
